FAERS Safety Report 5299976-2 (Version None)
Quarter: 2007Q2

REPORT INFORMATION
  Report Type: 
  Country: None (occurrence: None)
  Receive Date: 20070417
  Receipt Date: 20070313
  Transmission Date: 20071010
  Serious: Yes (Other)
  Sender: FDA-Public Use
  Company Number: PFIZER INC-2007019721

PATIENT
  Sex: Female

DRUGS (1)
  1. CHANTIX [Suspect]

REACTIONS (10)
  - ABDOMINAL DISTENSION [None]
  - ABNORMAL DREAMS [None]
  - DECREASED APPETITE [None]
  - DYSPEPSIA [None]
  - FATIGUE [None]
  - FLATULENCE [None]
  - HEPATITIS [None]
  - NAUSEA [None]
  - SOMNOLENCE [None]
  - TOOTH EXTRACTION [None]
